FAERS Safety Report 9061538 (Version 3)
Quarter: 2013Q1

REPORT INFORMATION
  Report Type: Spontaneous
  Country: KR (occurrence: KR)
  Receive Date: 20130204
  Receipt Date: 20130325
  Transmission Date: 20140127
  Serious: Yes (Other)
  Sender: FDA-Public Use
  Company Number: KR-JNJFOC-20130113979

PATIENT
  Age: 37 Year
  Sex: Female

DRUGS (14)
  1. ITRACONAZOLE [Suspect]
     Indication: ANTIFUNGAL PROPHYLAXIS
     Dosage: FOR 2 DAYS
     Route: 042
  2. ITRACONAZOLE [Suspect]
     Indication: ANTIFUNGAL PROPHYLAXIS
     Dosage: AFTER 2 DAYS
     Route: 042
  3. ITRACONAZOLE [Suspect]
     Indication: ANTIFUNGAL PROPHYLAXIS
     Route: 048
  4. ITRACONAZOLE [Suspect]
     Indication: ANTIFUNGAL PROPHYLAXIS
     Route: 048
  5. FLUCONAZOLE [Suspect]
     Indication: ANTIFUNGAL PROPHYLAXIS
     Route: 065
  6. CEFEPIME [Suspect]
     Indication: FEBRILE NEUTROPENIA
     Route: 065
  7. ISEPAMICIN [Suspect]
     Indication: FEBRILE NEUTROPENIA
     Route: 065
  8. IMIPENEM + CILASTATIN [Suspect]
     Indication: FEBRILE NEUTROPENIA
     Route: 065
  9. MEROPENEM [Suspect]
     Indication: FEBRILE NEUTROPENIA
     Route: 065
  10. TEICOPLANIN [Suspect]
     Indication: FEBRILE NEUTROPENIA
     Route: 065
  11. AMPHOTERICIN B [Suspect]
     Indication: ANTIFUNGAL PROPHYLAXIS
     Route: 042
  12. AMPHOTERICIN B [Suspect]
     Indication: ANTIFUNGAL PROPHYLAXIS
     Route: 042
  13. AMPHOTERICIN B [Suspect]
     Indication: ANTIFUNGAL PROPHYLAXIS
     Route: 042
  14. VORICONAZOLE [Suspect]
     Indication: ANTIFUNGAL PROPHYLAXIS
     Route: 048

REACTIONS (11)
  - Systemic candida [Unknown]
  - Blood alkaline phosphatase increased [Unknown]
  - Febrile neutropenia [Unknown]
  - Pleuritic pain [Unknown]
  - Pneumonia necrotising [Unknown]
  - Zygomycosis [Recovered/Resolved]
  - Rash [Unknown]
  - Asthenia [Unknown]
  - Nausea [Unknown]
  - Pyrexia [Unknown]
  - Adverse event [Unknown]
